FAERS Safety Report 7402752-5 (Version None)
Quarter: 2011Q2

REPORT INFORMATION
  Report Type: 
  Country: None (occurrence: None)
  Receive Date: 20110408
  Receipt Date: 20110328
  Transmission Date: 20111010
  Serious: Yes (Other)
  Sender: FDA-Public Use
  Company Number: US-ROCHE-768191

PATIENT
  Sex: Female

DRUGS (4)
  1. ZOMETA [Suspect]
     Route: 065
  2. HERCEPTIN [Suspect]
     Route: 065
  3. NEXIUM [Concomitant]
  4. TYKERB [Suspect]
     Route: 065

REACTIONS (4)
  - FATIGUE [None]
  - HAEMATOCHEZIA [None]
  - PALMAR-PLANTAR ERYTHRODYSAESTHESIA SYNDROME [None]
  - DYSPEPSIA [None]
